FAERS Safety Report 15479601 (Version 2)
Quarter: 2018Q4

REPORT INFORMATION
  Report Type: Other
  Country: CA (occurrence: CA)
  Receive Date: 20181009
  Receipt Date: 20181206
  Transmission Date: 20190205
  Serious: Yes (Hospitalization)
  Sender: FDA-Public Use
  Company Number: CA-CIPHER-2018-CA-001459

PATIENT
  Age: 64 Year
  Sex: Female
  Weight: 78 kg

DRUGS (10)
  1. OMEGA 3 [Concomitant]
     Active Substance: OMEGA-3 FATTY ACIDS
  2. ARAVA [Concomitant]
     Active Substance: LEFLUNOMIDE
  3. ATACAND [Concomitant]
     Active Substance: CANDESARTAN CILEXETIL
  4. LOSEC [Concomitant]
     Active Substance: OMEPRAZOLE
  5. OMEPRAZOLE. [Concomitant]
     Active Substance: OMEPRAZOLE
  6. ACETAMINOPHEN. [Concomitant]
     Active Substance: ACETAMINOPHEN
     Indication: PREMEDICATION
     Dosage: 650.0 MILLIGRAM
     Route: 048
  7. DIPHENHYDRAMINE HYDROCHLORIDE. [Concomitant]
     Active Substance: DIPHENHYDRAMINE HYDROCHLORIDE
     Indication: PREMEDICATION
     Dosage: 50.0 MILLIGRAM
     Route: 048
  8. RITUXAN [Suspect]
     Active Substance: RITUXIMAB
     Indication: RHEUMATOID ARTHRITIS
     Dosage: 1000.0 MILLIGRAMS
     Route: 042
  9. METHYLPREDNISOLONE. [Concomitant]
     Active Substance: METHYLPREDNISOLONE
     Indication: PREMEDICATION
     Dosage: 100.0 MILLIGRAM
     Route: 042
  10. MIRTAZAPINE. [Concomitant]
     Active Substance: MIRTAZAPINE

REACTIONS (28)
  - Hormone level abnormal [None]
  - Oxygen saturation decreased [None]
  - Pain [None]
  - Cough [None]
  - Nasopharyngitis [None]
  - Respiratory disorder [None]
  - Transient ischaemic attack [None]
  - Arthralgia [None]
  - Balance disorder [None]
  - Bronchitis [None]
  - Dyspnoea [None]
  - Productive cough [None]
  - Pyrexia [None]
  - Tooth disorder [None]
  - Laryngitis [Recovered/Resolved]
  - Localised infection [None]
  - Lower respiratory tract infection [None]
  - Abdominal pain [None]
  - Pulmonary fibrosis [None]
  - Weight increased [None]
  - Wound infection [None]
  - Alopecia [None]
  - Haemoglobin decreased [None]
  - Rales [None]
  - Sinus congestion [None]
  - Blood pressure fluctuation [None]
  - Hypertension [None]
  - Arthropathy [None]
